FAERS Safety Report 21730187 (Version 1)
Quarter: 2022Q4

REPORT INFORMATION
  Report Type: Spontaneous
  Country: GB (occurrence: GB)
  Receive Date: 20221214
  Receipt Date: 20221214
  Transmission Date: 20230113
  Serious: Yes (Other)
  Sender: FDA-Public Use
  Company Number: GB-MHRA-MED-202212071211406350-KJRMN

PATIENT
  Age: 66 Year
  Sex: Female

DRUGS (1)
  1. MACITENTAN [Suspect]
     Active Substance: MACITENTAN
     Indication: Pulmonary hypertension
     Dosage: 10MG OD; ;
     Route: 048
     Dates: start: 20150429

REACTIONS (1)
  - Lower respiratory tract infection [Not Recovered/Not Resolved]
